FAERS Safety Report 6821487-0 (Version None)
Quarter: 2010Q3

REPORT INFORMATION
  Report Type: 
  Country: None (occurrence: None)
  Receive Date: 20100707
  Receipt Date: 20081202
  Transmission Date: 20110219
  Serious: No
  Sender: FDA-Public Use
  Company Number: US-PFIZER INC-2008089467

PATIENT
  Sex: Female
  Weight: 65.8 kg

DRUGS (2)
  1. ZOLOFT [Suspect]
  2. CONTRACEPTIVE, UNSPECIFIED [Concomitant]

REACTIONS (7)
  - ANXIETY [None]
  - DISTURBANCE IN ATTENTION [None]
  - DRUG INEFFECTIVE [None]
  - FEELING ABNORMAL [None]
  - PALPITATIONS [None]
  - STRESS [None]
  - VISUAL IMPAIRMENT [None]
